FAERS Safety Report 18088680 (Version 12)
Quarter: 2025Q1

REPORT INFORMATION
  Report Type: Spontaneous
  Country: US (occurrence: US)
  Receive Date: 20200729
  Receipt Date: 20250109
  Transmission Date: 20250408
  Serious: Yes (Other)
  Sender: PFIZER
  Company Number: US-PFIZER INC-2020288209

PATIENT
  Age: 53 Year
  Sex: Female

DRUGS (28)
  1. DOCETAXEL [Suspect]
     Active Substance: DOCETAXEL
     Indication: Breast cancer female
     Dates: start: 20180420, end: 20180420
  2. DOCETAXEL [Suspect]
     Active Substance: DOCETAXEL
     Dates: start: 20180511, end: 20180511
  3. DOCETAXEL [Suspect]
     Active Substance: DOCETAXEL
     Dates: start: 20180601, end: 20180601
  4. DOCETAXEL [Suspect]
     Active Substance: DOCETAXEL
     Dates: start: 20180622, end: 20180622
  5. DOCETAXEL [Suspect]
     Active Substance: DOCETAXEL
     Dates: start: 20180713, end: 20180713
  6. DOCETAXEL [Suspect]
     Active Substance: DOCETAXEL
     Indication: Breast cancer female
     Dates: start: 20180420, end: 20180420
  7. DOCETAXEL [Suspect]
     Active Substance: DOCETAXEL
     Dates: start: 20180511, end: 20180511
  8. DOCETAXEL [Suspect]
     Active Substance: DOCETAXEL
     Dates: start: 20180601, end: 20180601
  9. DOCETAXEL [Suspect]
     Active Substance: DOCETAXEL
     Dates: start: 20180622, end: 20180622
  10. DOCETAXEL [Suspect]
     Active Substance: DOCETAXEL
     Dates: start: 20180713, end: 20180713
  11. TAXOTERE [Suspect]
     Active Substance: DOCETAXEL
     Indication: Breast cancer female
  12. HERCEPTIN [Concomitant]
     Active Substance: TRASTUZUMAB
     Indication: Chemotherapy
     Route: 048
  13. CARBOPLATIN [Concomitant]
     Active Substance: CARBOPLATIN
     Indication: Chemotherapy
  14. PERTUZUMAB [Concomitant]
     Active Substance: PERTUZUMAB
  15. GABAPENTIN [Concomitant]
     Active Substance: GABAPENTIN
     Route: 048
  16. ACETAMINOPHEN [Concomitant]
     Active Substance: ACETAMINOPHEN
     Indication: Pain
  17. ACETAMINOPHEN [Concomitant]
     Active Substance: ACETAMINOPHEN
     Indication: Pyrexia
  18. ACETAMINOPHEN [Concomitant]
     Active Substance: ACETAMINOPHEN
     Indication: Headache
  19. OXYCODONE [Concomitant]
     Active Substance: OXYCODONE
     Indication: Pain
  20. MELATONIN [Concomitant]
     Active Substance: MELATONIN
  21. CONJUGATED ESTROGENS [Concomitant]
     Active Substance: ESTROGENS, CONJUGATED
  22. DOCUSATE SODIUM [Concomitant]
     Active Substance: DOCUSATE SODIUM
  23. ONDANSETRON [Concomitant]
     Active Substance: ONDANSETRON
     Indication: Nausea
     Route: 048
  24. PROCHLORPERAZINE [Concomitant]
     Active Substance: PROCHLORPERAZINE
     Indication: Nausea
  25. TRAZODONE [Concomitant]
     Active Substance: TRAZODONE HYDROCHLORIDE
     Dosage: 100 MG, DAILY (NIGHT)
     Route: 048
  26. VITAMIN B12 [Concomitant]
     Active Substance: CYANOCOBALAMIN
  27. BIOTIN [Concomitant]
     Active Substance: BIOTIN
  28. VITAMINS [Concomitant]
     Active Substance: VITAMINS

REACTIONS (5)
  - Lacrimation increased [Not Recovered/Not Resolved]
  - Dacryostenosis acquired [Not Recovered/Not Resolved]
  - Skin irritation [Unknown]
  - Depression [Unknown]
  - Anxiety [Unknown]

NARRATIVE: CASE EVENT DATE: 20180713
